FAERS Safety Report 20216765 (Version 1)
Quarter: 2021Q4

REPORT INFORMATION
  Report Type: Report from Study
  Country: CH (occurrence: CG)
  Receive Date: 20211222
  Receipt Date: 20211222
  Transmission Date: 20220303
  Serious: Yes (Life-Threatening, Hospitalization, Other)
  Sender: FDA-Public Use
  Company Number: CH-BAYER-2014-147835

PATIENT
  Age: 12 Year
  Sex: Female

DRUGS (3)
  1. NIFURTIMOX [Suspect]
     Active Substance: NIFURTIMOX
     Indication: African trypanosomiasis
     Dosage: 2.75 DF DOSAGE FORM
     Route: 048
     Dates: start: 20090610, end: 20090619
  2. CIPROFLOXACIN [Suspect]
     Active Substance: CIPROFLOXACIN
  3. EFLORNITHINE [Suspect]
     Active Substance: EFLORNITHINE
     Indication: African trypanosomiasis
     Dosage: 44 ML TOTAL
     Route: 048
     Dates: start: 20090610, end: 20090616

REACTIONS (2)
  - Oliguria [Recovered/Resolved]
  - Abdominal pain [None]

NARRATIVE: CASE EVENT DATE: 20090617
